FAERS Safety Report 9731573 (Version 1)
Quarter: 2013Q4

REPORT INFORMATION
  Report Type: Spontaneous
  Country: US (occurrence: None)
  Receive Date: 20131204
  Receipt Date: 20131204
  Transmission Date: 20140711
  Serious: No
  Sender: FDA-Public Use
  Company Number: None

PATIENT
  Age: 64 Year
  Sex: Female
  Weight: 92.08 kg

DRUGS (1)
  1. XARELTO 10MG JANSSEN PHARMACY [Suspect]
     Indication: KNEE ARTHROPLASTY
     Route: 048
     Dates: start: 20131120, end: 20131122

REACTIONS (6)
  - Rash pruritic [None]
  - Rash [None]
  - Rash [None]
  - Wound [None]
  - Scab [None]
  - Wound secretion [None]
